FAERS Safety Report 4971594-2 (Version None)
Quarter: 2006Q2

REPORT INFORMATION
  Report Type: 
  Country: None (occurrence: None)
  Receive Date: 20060406
  Receipt Date: 20060324
  Transmission Date: 20061013
  Serious: Yes (Death, Life-Threatening)
  Sender: FDA-Public Use
  Company Number: 2006015297

PATIENT
  Age: 61 Year
  Sex: Male

DRUGS (7)
  1. VFEND [Suspect]
     Indication: LUNG INFILTRATION
     Dosage: 800 MG (UNKNOWN); INTRAVENOUS; 400 MG (UNKNOWN); INTRAVENOUS
     Route: 042
     Dates: start: 20060110, end: 20060110
  2. VFEND [Suspect]
     Indication: LUNG INFILTRATION
     Dosage: 800 MG (UNKNOWN); INTRAVENOUS; 400 MG (UNKNOWN); INTRAVENOUS
     Route: 042
     Dates: start: 20060111, end: 20060125
  3. PRIMAXIN [Concomitant]
  4. CEFOTAXIME [Concomitant]
  5. FENTANYL [Concomitant]
  6. KETANEST (KETAMINE HYDROCHLORIDE) [Concomitant]
  7. NITRAZEPAM [Concomitant]

REACTIONS (2)
  - MULTI-ORGAN FAILURE [None]
  - TOXIC EPIDERMAL NECROLYSIS [None]
